FAERS Safety Report 9729196 (Version 2)
Quarter: 2013Q4

REPORT INFORMATION
  Report Type: Spontaneous
  Country: FR (occurrence: FR)
  Receive Date: 20131204
  Receipt Date: 20131204
  Transmission Date: 20140711
  Serious: Yes (Hospitalization, Other)
  Sender: FDA-Public Use
  Company Number: FR-ABBVIE-13P-056-1155686-00

PATIENT
  Age: 57 Year
  Sex: Female

DRUGS (1)
  1. HUMIRA [Suspect]
     Indication: RHEUMATOID ARTHRITIS
     Route: 058
     Dates: start: 2010

REACTIONS (5)
  - Dry lung syndrome [Unknown]
  - Interstitial lung disease [Unknown]
  - Interstitial lung disease [Unknown]
  - Bronchitis [Unknown]
  - Sjogren^s syndrome [Unknown]
